FAERS Safety Report 9889665 (Version 1)
Quarter: 2014Q1

REPORT INFORMATION
  Report Type: Spontaneous
  Country: IT (occurrence: IT)
  Receive Date: 20140211
  Receipt Date: 20140211
  Transmission Date: 20141002
  Serious: Yes (Death)
  Sender: FDA-Public Use
  Company Number: IT-PFIZER INC-2014038202

PATIENT
  Age: 78 Year
  Sex: Male

DRUGS (2)
  1. CARBOPLATINO PFIZER ITALIA [Suspect]
     Indication: LUNG CARCINOMA CELL TYPE UNSPECIFIED RECURRENT
     Dosage: 400 MG, CYCLIC
     Route: 042
     Dates: start: 20131030, end: 20131212
  2. ALIMTA [Suspect]
     Indication: LUNG CARCINOMA CELL TYPE UNSPECIFIED RECURRENT
     Dosage: 750 MG, CYCLIC
     Route: 042
     Dates: start: 20131030, end: 20131212

REACTIONS (1)
  - Cardiac arrest [Fatal]
